APPROVED DRUG PRODUCT: LOMANATE
Active Ingredient: ATROPINE SULFATE; DIPHENOXYLATE HYDROCHLORIDE
Strength: 0.025MG/5ML;2.5MG/5ML
Dosage Form/Route: SOLUTION;ORAL
Application: A085746 | Product #001
Applicant: ALPHARMA US PHARMACEUTICALS DIVISION
Approved: Approved Prior to Jan 1, 1982 | RLD: No | RS: No | Type: DISCN